FAERS Safety Report 13003790 (Version 1)
Quarter: 2016Q4

REPORT INFORMATION
  Report Type: Spontaneous
  Country: BR (occurrence: BR)
  Receive Date: 20161206
  Receipt Date: 20161206
  Transmission Date: 20170207
  Serious: Yes (Other)
  Sender: FDA-Public Use
  Company Number: PHHY2016BR163538

PATIENT
  Sex: Female

DRUGS (4)
  1. RAZAPINA [Suspect]
     Active Substance: MIRTAZAPINE
     Indication: BULIMIA NERVOSA
  2. RAZAPINA [Suspect]
     Active Substance: MIRTAZAPINE
     Indication: EATING DISORDER
  3. RAZAPINA [Suspect]
     Active Substance: MIRTAZAPINE
     Indication: DEPRESSION
     Dosage: 15 MG, QD AT NIGHT
     Route: 060
     Dates: start: 20161122
  4. RAZAPINA [Suspect]
     Active Substance: MIRTAZAPINE
     Indication: BIPOLAR DISORDER

REACTIONS (2)
  - Pharyngeal hypoaesthesia [Unknown]
  - Maternal exposure during pregnancy [Unknown]
